FAERS Safety Report 18251335 (Version 3)
Quarter: 2020Q4

REPORT INFORMATION
  Report Type: Spontaneous
  Country: US (occurrence: US)
  Receive Date: 20200910
  Receipt Date: 20201111
  Transmission Date: 20210113
  Serious: No
  Sender: FDA-Public Use
  Company Number: US-ASTRAZENECA-2020SF14057

PATIENT
  Age: 73 Year
  Sex: Male
  Weight: 88.5 kg

DRUGS (6)
  1. BYDUREON BCISE [Suspect]
     Active Substance: EXENATIDE
     Indication: TYPE 2 DIABETES MELLITUS
     Route: 058
  2. BYDUREON [Suspect]
     Active Substance: EXENATIDE
     Indication: TYPE 2 DIABETES MELLITUS
     Route: 058
  3. BYETTA [Suspect]
     Active Substance: EXENATIDE
     Indication: TYPE 2 DIABETES MELLITUS
     Route: 058
  4. LANTUS [Concomitant]
     Active Substance: INSULIN GLARGINE
     Indication: TYPE 2 DIABETES MELLITUS
     Dosage: 28 DAYS AGO AND STILL WORKING ON DOSAGE
     Route: 058
  5. METFORMIN [Concomitant]
     Active Substance: METFORMIN HYDROCHLORIDE
     Indication: TYPE 2 DIABETES MELLITUS
     Dosage: AT LEAST 10 YEARS
     Route: 048
  6. ACTOS [Concomitant]
     Active Substance: PIOGLITAZONE HYDROCHLORIDE
     Indication: TYPE 2 DIABETES MELLITUS
     Dosage: AT LEAST 10 YEARS
     Route: 048

REACTIONS (9)
  - Device malfunction [Unknown]
  - Nausea [Recovered/Resolved]
  - Wrong technique in device usage process [Unknown]
  - Intentional device misuse [Unknown]
  - Device leakage [Unknown]
  - Confusional state [Unknown]
  - Decreased appetite [Unknown]
  - Back pain [Recovering/Resolving]
  - Incorrect dose administered by device [Unknown]
